FAERS Safety Report 6417732-6 (Version None)
Quarter: 2009Q4

REPORT INFORMATION
  Report Type: 
  Country: None (occurrence: None)
  Receive Date: 20091027
  Receipt Date: 20091027
  Transmission Date: 20100525
  Serious: Yes (Life-Threatening, Hospitalization)
  Sender: FDA-Public Use
  Company Number: None

PATIENT
  Age: 52 Year
  Sex: Female
  Weight: 55 kg

DRUGS (3)
  1. IBUPROFEN [Suspect]
     Indication: PAIN
     Dosage: 1G PO BID
     Route: 048
  2. BUTALBITAL/ASA/CAFFEINE [Concomitant]
  3. ALPRAZOLAM [Concomitant]

REACTIONS (10)
  - ASTHENIA [None]
  - BLOOD PRESSURE DECREASED [None]
  - BLOOD URINE [None]
  - DUODENAL ULCER HAEMORRHAGE [None]
  - HAEMOGLOBIN DECREASED [None]
  - HYPERHIDROSIS [None]
  - PAIN [None]
  - PLATELET COUNT DECREASED [None]
  - PLATELET COUNT INCREASED [None]
  - UNRESPONSIVE TO STIMULI [None]
